FAERS Safety Report 23388062 (Version 1)
Quarter: 2024Q1

REPORT INFORMATION
  Report Type: Spontaneous
  Country: BR (occurrence: BR)
  Receive Date: 20240110
  Receipt Date: 20240110
  Transmission Date: 20240409
  Serious: Yes (Hospitalization, Other)
  Sender: FDA-Public Use
  Company Number: BR-002147023-NVSC2023BR272885

PATIENT
  Age: 76 Year
  Sex: Female
  Weight: 88 kg

DRUGS (2)
  1. KISQALI [Suspect]
     Active Substance: RIBOCICLIB
     Indication: Breast cancer metastatic
     Dosage: 3 DOSAGE FORM, QD (3 TABLETS PER DAY FOR 21 DAYS AND 7-DAY BREAK) (63 COATED-TABLET)
     Route: 065
     Dates: start: 202309
  2. FEMARA [Suspect]
     Active Substance: LETROZOLE
     Indication: Breast cancer metastatic
     Dosage: 1 DOSAGE FORM, QD (1 TABLET PER DAY) (2.5 UNIT NOT REPORTED WITH 28 TABLETS)
     Route: 065
     Dates: start: 202309

REACTIONS (7)
  - Diabetes mellitus [Unknown]
  - Immunodeficiency [Unknown]
  - Kidney infection [Unknown]
  - Blood pressure increased [Unknown]
  - Blood glucose increased [Unknown]
  - Cardiac disorder [Unknown]
  - Malaise [Unknown]

NARRATIVE: CASE EVENT DATE: 20231216
